FAERS Safety Report 22018336 (Version 1)
Quarter: 2023Q1

REPORT INFORMATION
  Report Type: Report from Study
  Country: IT (occurrence: None)
  Receive Date: 20230221
  Receipt Date: 20230221
  Transmission Date: 20230417
  Serious: Yes (Other)
  Sender: FDA-Public Use
  Company Number: IT-Merck Healthcare KGaA-9385076

PATIENT
  Age: 60 Year
  Sex: Female

DRUGS (1)
  1. REBIF [Suspect]
     Active Substance: INTERFERON BETA-1A
     Indication: Product used for unknown indication
     Route: 058
     Dates: start: 20130528

REACTIONS (1)
  - Gastrointestinal neoplasm [Not Recovered/Not Resolved]

NARRATIVE: CASE EVENT DATE: 20220301
